FAERS Safety Report 5982463-3 (Version None)
Quarter: 2008Q4

REPORT INFORMATION
  Report Type: 
  Country: None (occurrence: None)
  Receive Date: 20081208
  Receipt Date: 20081203
  Transmission Date: 20090506
  Serious: Yes (Hospitalization)
  Sender: FDA-Public Use
  Company Number: KR-BRISTOL-MYERS SQUIBB COMPANY-13523402

PATIENT
  Age: 63 Year
  Sex: Male

DRUGS (24)
  1. CISPLATIN [Suspect]
     Indication: NON-SMALL CELL LUNG CANCER
     Route: 042
     Dates: start: 20060829, end: 20060829
  2. PF-3512676 [Suspect]
     Indication: NON-SMALL CELL LUNG CANCER
     Route: 058
     Dates: start: 20060904, end: 20060904
  3. GEMCITABINE HCL [Suspect]
     Indication: NON-SMALL CELL LUNG CANCER
     Dosage: INITIAL DOSE GIVEN ON 29AUG06
     Route: 042
     Dates: start: 20060904, end: 20060904
  4. MUCOSTA [Concomitant]
     Route: 048
     Dates: start: 20060822, end: 20060911
  5. VALIUM [Concomitant]
     Route: 048
     Dates: start: 20060822, end: 20060829
  6. ZOLPIDEM [Concomitant]
     Route: 048
     Dates: start: 20060820, end: 20060829
  7. HARNAL [Concomitant]
     Route: 048
     Dates: start: 20060824, end: 20060904
  8. MAGNESIUM HYDROXIDE TAB [Concomitant]
     Route: 048
     Dates: start: 20060825, end: 20060911
  9. MESULID [Concomitant]
     Route: 048
     Dates: start: 20060825, end: 20060911
  10. OXYCONTIN [Concomitant]
     Route: 048
     Dates: start: 20060823, end: 20060911
  11. MEGACE [Concomitant]
     Route: 048
     Dates: start: 20060829, end: 20060911
  12. DEXAMETHASONE [Concomitant]
     Route: 048
     Dates: start: 20060829, end: 20060829
  13. RAMOSETRON HCL [Concomitant]
     Dosage: FIRST TAKEN ON 29AUG06 AS IV, ALSO FROM 30AUG TO 01SEP06 AS ORAL
     Route: 042
     Dates: start: 20060829, end: 20060829
  14. POTASSIUM CHLORIDE [Concomitant]
     Route: 042
     Dates: start: 20060829, end: 20060830
  15. FUROSEMIDE [Concomitant]
     Route: 042
     Dates: start: 20060829, end: 20060830
  16. MANNITOL [Concomitant]
     Route: 042
     Dates: start: 20060829, end: 20060829
  17. RANITIDINE [Concomitant]
     Route: 042
     Dates: start: 20060829, end: 20060829
  18. SEROQUEL [Concomitant]
     Route: 048
     Dates: start: 20060830, end: 20060830
  19. FAMOTIDINE [Concomitant]
     Route: 048
     Dates: start: 20060831, end: 20060904
  20. FENTANYL-100 [Concomitant]
     Route: 061
     Dates: start: 20060831, end: 20060911
  21. METOCLOPRAMIDE HCL [Concomitant]
     Route: 042
     Dates: start: 20060904, end: 20060904
  22. FREAMINE [Concomitant]
     Route: 042
     Dates: start: 20060904, end: 20060904
  23. ACETAMINOPHEN [Concomitant]
     Route: 048
     Dates: start: 20060904, end: 20060904
  24. DIGESTIVE ENZYMES [Concomitant]
     Route: 048
     Dates: start: 20060830, end: 20060830

REACTIONS (1)
  - ASTHENIA [None]
